FAERS Safety Report 6685618-8 (Version None)
Quarter: 2010Q2

REPORT INFORMATION
  Report Type: 
  Country: None (occurrence: None)
  Receive Date: 20100419
  Receipt Date: 20100409
  Transmission Date: 20101027
  Serious: No
  Sender: FDA-Public Use
  Company Number: US-BIOGENIDEC-2010BI012398

PATIENT
  Age: 40 Year
  Sex: Male

DRUGS (3)
  1. TYSABRI [Suspect]
     Indication: MULTIPLE SCLEROSIS
     Route: 042
     Dates: start: 20070817, end: 20080808
  2. TYSABRI [Suspect]
     Route: 042
     Dates: start: 20091204
  3. ELECTIVE HORMONE THERAPY [Concomitant]
     Indication: PROPHYLAXIS
     Dates: start: 20080101

REACTIONS (1)
  - BLOOD TESTOSTERONE DECREASED [None]
